FAERS Safety Report 7257268-6 (Version None)
Quarter: 2011Q1

REPORT INFORMATION
  Report Type: 
  Country: None (occurrence: None)
  Receive Date: 20110129
  Receipt Date: 20100628
  Transmission Date: 20110831
  Serious: No
  Sender: FDA-Public Use
  Company Number: US-ABBOTT-10P-163-0655224-00

PATIENT
  Sex: Female

DRUGS (10)
  1. CYMBALTA [Concomitant]
     Indication: DEPRESSION
  2. PREDNISONE [Concomitant]
     Indication: PRODUCT USED FOR UNKNOWN INDICATION
  3. VITMAIN D [Concomitant]
     Indication: PRODUCT USED FOR UNKNOWN INDICATION
  4. METHOTREXATE [Concomitant]
     Indication: RHEUMATOID ARTHRITIS
     Dosage: WEEKLY ON MONDAYS
  5. TRANSDERNALSYM [Concomitant]
     Indication: PRODUCT USED FOR UNKNOWN INDICATION
     Dosage: AS SPELLED AND PRONOUNCED BY PATIENT.
  6. FENTANYL [Concomitant]
     Indication: BACK PAIN
     Dosage: PATCH
  7. HYDROXYCHLOROQUINE [Concomitant]
     Indication: PRODUCT USED FOR UNKNOWN INDICATION
  8. FIORICET [Concomitant]
     Indication: MIGRAINE
     Dosage: GENERIC FORM IS TAKEN.
  9. HUMIRA [Suspect]
     Indication: RHEUMATOID ARTHRITIS
     Route: 058
     Dates: start: 20080101
  10. UNKNOWN THYROID MEDICATION [Concomitant]
     Indication: THYROID DISORDER

REACTIONS (5)
  - OEDEMA PERIPHERAL [None]
  - JOINT LOCK [None]
  - DEPRESSION [None]
  - PAIN [None]
  - GRIP STRENGTH DECREASED [None]
